FAERS Safety Report 7861623-0 (Version None)
Quarter: 2011Q4

REPORT INFORMATION
  Report Type: 
  Country: None (occurrence: None)
  Receive Date: 20111027
  Receipt Date: 20111024
  Transmission Date: 20120403
  Serious: Yes (Hospitalization)
  Sender: FDA-Public Use
  Company Number: US-ROCHE-701490

PATIENT
  Sex: Male
  Weight: 71.4 kg

DRUGS (2)
  1. AVASTIN [Suspect]
     Indication: NEOPLASM
     Dosage: 1009 UNK, Q3W
     Route: 042
  2. MNRP1685A (ANTI-NRP1) [Suspect]
     Indication: NEOPLASM
     Dosage: 2422 UNK, Q3W
     Route: 042

REACTIONS (1)
  - PURPURA [None]
